FAERS Safety Report 9439260 (Version 2)
Quarter: 2013Q3

REPORT INFORMATION
  Report Type: Spontaneous
  Country: SE (occurrence: SE)
  Receive Date: 20130804
  Receipt Date: 20130924
  Transmission Date: 20140515
  Serious: Yes (Hospitalization)
  Sender: FDA-Public Use
  Company Number: SE-ROCHE-1256768

PATIENT
  Age: 43 Year
  Sex: Male

DRUGS (3)
  1. MABTHERA [Suspect]
     Indication: DERMATOMYOSITIS
     Dosage: CONCENTRATE FOR SOLUTION FOR INFUSION 500 MG
     Route: 042
     Dates: start: 20051018, end: 20130404
  2. MABTHERA [Suspect]
     Indication: OFF LABEL USE
  3. METHOTREXATE [Suspect]
     Indication: DERMATOMYOSITIS
     Route: 048
     Dates: start: 20051018, end: 20130404

REACTIONS (1)
  - Gastrointestinal carcinoma [Unknown]
